FAERS Safety Report 9504829 (Version 1)
Quarter: 2013Q3

REPORT INFORMATION
  Report Type: Spontaneous
  Country: GB (occurrence: GB)
  Receive Date: 20130906
  Receipt Date: 20130906
  Transmission Date: 20140515
  Serious: Yes (Other)
  Sender: FDA-Public Use
  Company Number: GB-PFIZER INC-2013255412

PATIENT
  Age: 49 Year
  Sex: Male

DRUGS (3)
  1. CHAMPIX [Suspect]
     Dosage: UNK
     Route: 048
  2. EFAVIRENZ [Concomitant]
     Dosage: 600MG
     Route: 048
  3. KIVEXA [Concomitant]
     Dosage: 600/300MG
     Route: 048

REACTIONS (3)
  - Nicotine dependence [Recovered/Resolved]
  - Vision blurred [Recovered/Resolved]
  - Abasia [Recovered/Resolved]
